FAERS Safety Report 4848052-9 (Version None)
Quarter: 2005Q4

REPORT INFORMATION
  Report Type: 
  Country: None (occurrence: None)
  Receive Date: 20051207
  Receipt Date: 20051207
  Transmission Date: 20060501
  Serious: Yes (Death)
  Sender: FDA-Public Use
  Company Number: None

PATIENT
  Age: 58 Year
  Sex: Female
  Weight: 114.76 kg

DRUGS (2)
  1. LEPIRUDIN [Suspect]
     Indication: DEEP VEIN THROMBOSIS
     Dosage: 0.0225 MG/KG/HR
     Dates: start: 20051002, end: 20051002
  2. LEPIRUDIN [Suspect]
     Indication: HEPARIN-INDUCED THROMBOCYTOPENIA
     Dosage: 0.0225 MG/KG/HR
     Dates: start: 20051002, end: 20051002

REACTIONS (2)
  - CEREBRAL HAEMORRHAGE [None]
  - CONVULSION [None]
